FAERS Safety Report 5561871-9 (Version None)
Quarter: 2007Q4

REPORT INFORMATION
  Report Type: 
  Country: None (occurrence: None)
  Receive Date: 20071215
  Receipt Date: 20071005
  Transmission Date: 20080405
  Serious: No
  Sender: FDA-Public Use
  Company Number: US-AMGEN-KDL246857

PATIENT
  Sex: Female

DRUGS (1)
  1. ENBREL [Suspect]
     Indication: RHEUMATOID ARTHRITIS
     Route: 058
     Dates: start: 20070927

REACTIONS (4)
  - DYSPHAGIA [None]
  - DYSURIA [None]
  - GAIT DISTURBANCE [None]
  - MUSCLE SPASMS [None]
